FAERS Safety Report 5851672-6 (Version None)
Quarter: 2008Q3

REPORT INFORMATION
  Report Type: 
  Country: None (occurrence: None)
  Receive Date: 20080808
  Receipt Date: 20080602
  Transmission Date: 20090109
  Serious: No
  Sender: FDA-Public Use
  Company Number: WAES 0806USA00399

PATIENT
  Age: 60 Year
  Sex: Male

DRUGS (1)
  1. ZOLINZA [Suspect]
     Indication: MYCOSIS FUNGOIDES
     Dosage: 400 MG/DAILY

REACTIONS (1)
  - BONE PAIN [None]
